FAERS Safety Report 9435483 (Version 4)
Quarter: 2015Q4

REPORT INFORMATION
  Report Type: Spontaneous
  Country: FR (occurrence: FR)
  Receive Date: 20130801
  Receipt Date: 20151231
  Transmission Date: 20160305
  Serious: Yes (Hospitalization)
  Sender: FDA-Public Use
  Company Number: FR-JNJFOC-20130713320

PATIENT
  Age: 27 Year
  Sex: Female
  Weight: 36.02 kg

DRUGS (9)
  1. HYDROCORTISONE. [Concomitant]
     Active Substance: HYDROCORTISONE
     Indication: CROHN^S DISEASE
     Dosage: 2 DOSAGE FORMS IN THE MORNING AND 1 DOSAGE FORM AT NOON
     Route: 048
     Dates: start: 20130603
  2. ACETAMINOPHEN AND CODEINE [Suspect]
     Active Substance: ACETAMINOPHEN\CODEINE PHOSPHATE
     Indication: PROCEDURAL PAIN
     Route: 048
  3. ACETAMINOPHEN AND CODEINE [Suspect]
     Active Substance: ACETAMINOPHEN\CODEINE PHOSPHATE
     Indication: CROHN^S DISEASE
     Dosage: 500/30MG
     Route: 048
     Dates: start: 20130115, end: 20130417
  4. ACETAMINOPHEN AND CODEINE [Suspect]
     Active Substance: ACETAMINOPHEN\CODEINE PHOSPHATE
     Indication: ABDOMINAL PAIN
     Route: 048
  5. ACETAMINOPHEN AND CODEINE [Suspect]
     Active Substance: ACETAMINOPHEN\CODEINE PHOSPHATE
     Indication: CROHN^S DISEASE
     Route: 048
  6. NEXPLANON [Concomitant]
     Active Substance: ETONOGESTREL
     Indication: CONTRACEPTION
     Dosage: 60 TO 70 UG DAILY
     Route: 062
     Dates: start: 20120619
  7. ACETAMINOPHEN AND CODEINE [Suspect]
     Active Substance: ACETAMINOPHEN\CODEINE PHOSPHATE
     Indication: PROCEDURAL PAIN
     Dosage: 500/30MG
     Route: 048
     Dates: start: 20130115, end: 20130417
  8. ACETAMINOPHEN AND CODEINE [Suspect]
     Active Substance: ACETAMINOPHEN\CODEINE PHOSPHATE
     Indication: ABDOMINAL PAIN
     Dosage: 500/30MG
     Route: 048
     Dates: start: 20130115, end: 20130417
  9. HYDROCORTISONE. [Concomitant]
     Active Substance: HYDROCORTISONE
     Indication: CROHN^S DISEASE
     Route: 048
     Dates: start: 20130227

REACTIONS (2)
  - Intestinal obstruction [Recovered/Resolved with Sequelae]
  - Anaemia [Unknown]

NARRATIVE: CASE EVENT DATE: 20130412
